FAERS Safety Report 6704460-2 (Version None)
Quarter: 2010Q2

REPORT INFORMATION
  Report Type: 
  Country: None (occurrence: None)
  Receive Date: 20100430
  Receipt Date: 20100421
  Transmission Date: 20101027
  Serious: Yes (Death, Other)
  Sender: FDA-Public Use
  Company Number: GXKR2010GB01904

PATIENT
  Age: 60 Year
  Sex: Male
  Weight: 134 kg

DRUGS (5)
  1. OXALIPLATIN [Suspect]
     Indication: COLORECTAL CANCER METASTATIC
     Dosage: 260 MG, ONCE IN THREE WEEKS
     Route: 042
     Dates: start: 20091027, end: 20091229
  2. CAPECITABINE [Suspect]
     Indication: COLORECTAL CANCER METASTATIC
     Dosage: 2000 MG, BID
     Route: 048
     Dates: start: 20091027, end: 20100107
  3. AVASTIN [Suspect]
     Indication: COLORECTAL CANCER METASTATIC
     Dosage: 700 MG, ONCE IN THREE WEEKS
     Route: 042
     Dates: start: 20091027, end: 20091229
  4. DEXAMETHASONE [Concomitant]
     Indication: PROPHYLAXIS OF NAUSEA AND VOMITING
     Dosage: 4 MG, UNK
     Route: 048
     Dates: start: 20091229, end: 20091231
  5. METOCLOPRAMIDE HYDROCHLORIDE [Concomitant]
     Indication: PROPHYLAXIS OF NAUSEA AND VOMITING
     Dosage: UNK
     Dates: start: 20091229

REACTIONS (9)
  - CHILLS [None]
  - CONSTIPATION [None]
  - COUGH [None]
  - HYPOTENSION [None]
  - MALIGNANT NEOPLASM PROGRESSION [None]
  - PULMONARY EMBOLISM [None]
  - PYREXIA [None]
  - SEPSIS [None]
  - TACHYCARDIA [None]
